FAERS Safety Report 13535957 (Version 1)
Quarter: 2017Q2

REPORT INFORMATION
  Report Type: Spontaneous
  Country: US (occurrence: US)
  Receive Date: 20170511
  Receipt Date: 20170511
  Transmission Date: 20170830
  Serious: No
  Sender: FDA-Public Use
  Company Number: US-PFIZER INC-2017197522

PATIENT
  Age: 70 Year
  Sex: Female

DRUGS (4)
  1. BACITRACIN ZINC. [Suspect]
     Active Substance: BACITRACIN ZINC
     Dosage: UNK
     Route: 061
  2. NEOMYCIN SULFATE. [Suspect]
     Active Substance: NEOMYCIN SULFATE
     Dosage: UNK
     Route: 061
  3. BACITRACIN. [Suspect]
     Active Substance: BACITRACIN
     Dosage: UNK
     Route: 061
  4. POLYMYXIN B. [Suspect]
     Active Substance: POLYMYXIN B
     Dosage: UNK
     Route: 061

REACTIONS (2)
  - Drug hypersensitivity [Unknown]
  - Rash [Unknown]
